FAERS Safety Report 10349465 (Version 1)
Quarter: 2014Q3

REPORT INFORMATION
  Report Type: Spontaneous
  Country: US (occurrence: None)
  Receive Date: 20140728
  Receipt Date: 20140728
  Transmission Date: 20150326
  Serious: Yes (Hospitalization)
  Sender: FDA-Public Use
  Company Number: None

PATIENT
  Age: 64 Year
  Sex: Male
  Weight: 80.5 kg

DRUGS (1)
  1. WARFARIN [Suspect]
     Active Substance: WARFARIN
     Route: 048
     Dates: start: 20090430

REACTIONS (4)
  - Haematuria [None]
  - Product colour issue [None]
  - Incorrect dose administered [None]
  - International normalised ratio increased [None]

NARRATIVE: CASE EVENT DATE: 20140522
